FAERS Safety Report 19750662 (Version 4)
Quarter: 2022Q1

REPORT INFORMATION
  Report Type: Report from Study
  Country: US (occurrence: US)
  Receive Date: 20210826
  Receipt Date: 20220207
  Transmission Date: 20220424
  Serious: Yes (Hospitalization, Other)
  Sender: FDA-Public Use
  Company Number: US-TAKEDA-2021TUS052118

PATIENT
  Age: 78 Year
  Sex: Male

DRUGS (17)
  1. TEDUGLUTIDE [Suspect]
     Active Substance: TEDUGLUTIDE
     Indication: Short-bowel syndrome
     Dosage: 5 MILLIGRAM, QD
     Route: 065
     Dates: start: 201803, end: 20190301
  2. TEDUGLUTIDE [Suspect]
     Active Substance: TEDUGLUTIDE
     Indication: Short-bowel syndrome
     Dosage: 5 MILLIGRAM, QD
     Route: 065
     Dates: start: 201803, end: 20190301
  3. TEDUGLUTIDE [Suspect]
     Active Substance: TEDUGLUTIDE
     Indication: Short-bowel syndrome
     Dosage: 5 MILLIGRAM, QD
     Route: 065
     Dates: start: 201803, end: 20190301
  4. TEDUGLUTIDE [Suspect]
     Active Substance: TEDUGLUTIDE
     Indication: Short-bowel syndrome
     Dosage: 5 MILLIGRAM, QD
     Route: 065
     Dates: start: 201803, end: 20190301
  5. TEDUGLUTIDE [Suspect]
     Active Substance: TEDUGLUTIDE
     Dosage: 3.94 MILLIGRAM, QD
     Route: 065
     Dates: start: 20190306
  6. TEDUGLUTIDE [Suspect]
     Active Substance: TEDUGLUTIDE
     Dosage: 3.94 MILLIGRAM, QD
     Route: 065
     Dates: start: 20190306
  7. TEDUGLUTIDE [Suspect]
     Active Substance: TEDUGLUTIDE
     Dosage: 3.94 MILLIGRAM, QD
     Route: 065
     Dates: start: 20190306
  8. TEDUGLUTIDE [Suspect]
     Active Substance: TEDUGLUTIDE
     Dosage: 3.94 MILLIGRAM, QD
     Route: 065
     Dates: start: 20190306
  9. TEDUGLUTIDE [Suspect]
     Active Substance: TEDUGLUTIDE
     Dosage: 3.94 MILLIGRAM, QD
     Route: 065
     Dates: start: 20190306, end: 20210202
  10. TEDUGLUTIDE [Suspect]
     Active Substance: TEDUGLUTIDE
     Dosage: 3.94 MILLIGRAM, QD
     Route: 065
     Dates: start: 20190306, end: 20210202
  11. TEDUGLUTIDE [Suspect]
     Active Substance: TEDUGLUTIDE
     Dosage: 3.94 MILLIGRAM, QD
     Route: 065
     Dates: start: 20190306, end: 20210202
  12. TEDUGLUTIDE [Suspect]
     Active Substance: TEDUGLUTIDE
     Dosage: 3.94 MILLIGRAM, QD
     Route: 065
     Dates: start: 20190306, end: 20210202
  13. OXYCODONE [Concomitant]
     Active Substance: OXYCODONE
     Indication: Pain management
     Dosage: 5 MILLIGRAM, QD
     Route: 048
  14. NYSTATIN [Concomitant]
     Active Substance: NYSTATIN
     Indication: Anal injury
     Dosage: 100000 INTERNATIONAL UNIT, QD
     Route: 048
  15. MEGACE ES [Concomitant]
     Active Substance: MEGESTROL ACETATE
     Indication: Weight decreased
     Dosage: 625 MILLIGRAM, QD
     Route: 048
  16. MEGACE ES [Concomitant]
     Active Substance: MEGESTROL ACETATE
     Indication: Prophylaxis
  17. VITAMIN C [Concomitant]
     Active Substance: ASCORBIC ACID
     Indication: Vitamin supplementation
     Dosage: 160 MILLIGRAM, QD
     Route: 048

REACTIONS (2)
  - Staphylococcal sepsis [Recovered/Resolved]
  - Device related sepsis [Recovered/Resolved]

NARRATIVE: CASE EVENT DATE: 20200513
